FAERS Safety Report 6781834-5 (Version None)
Quarter: 2010Q2

REPORT INFORMATION
  Report Type: 
  Country: None (occurrence: None)
  Receive Date: 20100621
  Receipt Date: 20100609
  Transmission Date: 20101027
  Serious: Yes (Other)
  Sender: FDA-Public Use
  Company Number: PHHY2010US37784

PATIENT
  Age: 76 Year
  Sex: Female

DRUGS (1)
  1. RECLAST [Suspect]

REACTIONS (1)
  - FEMUR FRACTURE [None]
